FAERS Safety Report 16351593 (Version 1)
Quarter: 2019Q2

REPORT INFORMATION
  Report Type: Spontaneous
  Country: IT (occurrence: IT)
  Receive Date: 20190524
  Receipt Date: 20190524
  Transmission Date: 20190711
  Serious: Yes (Other)
  Sender: FDA-Public Use
  Company Number: IT-ROCHE-2325284

PATIENT
  Age: 42 Year
  Sex: Male
  Weight: 68 kg

DRUGS (3)
  1. XOLAIR [Suspect]
     Active Substance: OMALIZUMAB
     Indication: ASTHMA
     Route: 058
  2. FLUXARTEN [Concomitant]
     Indication: MIGRAINE
     Dosage: 5 MG, UNK
     Route: 065
  3. FROVATRIPTAN SUCCINATE MONOHYDRATE [Concomitant]
     Indication: MIGRAINE
     Dosage: 2.5 MG, UNK
     Route: 065

REACTIONS (5)
  - Palatal oedema [Recovering/Resolving]
  - Trismus [Recovering/Resolving]
  - Oedema mouth [Recovering/Resolving]
  - Abdominal pain [Recovering/Resolving]
  - Hypertension [Recovering/Resolving]

NARRATIVE: CASE EVENT DATE: 20190502
